FAERS Safety Report 5515638-8 (Version None)
Quarter: 2007Q4

REPORT INFORMATION
  Report Type: 
  Country: None (occurrence: None)
  Receive Date: 20071113
  Receipt Date: 20070719
  Transmission Date: 20080405
  Serious: No
  Sender: FDA-Public Use
  Company Number: A0665255A

PATIENT
  Age: 57 Year
  Sex: Male

DRUGS (20)
  1. COREG [Suspect]
     Indication: HYPERTENSION
     Dosage: 25MG TWICE PER DAY
     Route: 048
     Dates: start: 20020101
  2. ALTACE [Concomitant]
  3. DIGOXIN [Concomitant]
  4. LASIX [Concomitant]
  5. ALDACTONE [Concomitant]
  6. COUMADIN [Concomitant]
  7. LEVOXYL [Concomitant]
  8. K-LYTE [Concomitant]
  9. BYETTA [Concomitant]
  10. CALCIUM [Concomitant]
  11. VIT D [Concomitant]
  12. HECTOROL [Concomitant]
  13. MULTI-VITAMIN [Concomitant]
  14. FISH OIL [Concomitant]
  15. TUMS [Concomitant]
  16. SODIUM BICARBONATE [Concomitant]
  17. ALLOPURINOL [Concomitant]
  18. UNKNOWN MEDICATION [Concomitant]
  19. IRON INFUSION [Concomitant]
  20. MAGNESIUM SULFATE [Concomitant]

REACTIONS (5)
  - BLOOD PRESSURE FLUCTUATION [None]
  - DIZZINESS [None]
  - FATIGUE [None]
  - HYPOTENSION [None]
  - VISUAL DISTURBANCE [None]
